FAERS Safety Report 20075007 (Version 1)
Quarter: 2021Q4

REPORT INFORMATION
  Report Type: Spontaneous
  Country: US (occurrence: US)
  Receive Date: 20211116
  Receipt Date: 20211116
  Transmission Date: 20220303
  Serious: No
  Sender: FDA-Public Use
  Company Number: US-SA-SAC20211110001206

PATIENT
  Sex: Male

DRUGS (1)
  1. DUPIXENT [Suspect]
     Active Substance: DUPILUMAB
     Indication: Dermatitis atopic
     Dosage: 200MG/1.14 ML, 200 MG, QOW
     Route: 058
     Dates: start: 20201201

REACTIONS (3)
  - Pruritus [Unknown]
  - Eczema [Unknown]
  - Dry skin [Unknown]
